FAERS Safety Report 5038466-9 (Version None)
Quarter: 2006Q2

REPORT INFORMATION
  Report Type: 
  Country: None (occurrence: None)
  Receive Date: 20060628
  Receipt Date: 20060628
  Transmission Date: 20061013
  Serious: Yes (Hospitalization)
  Sender: FDA-Public Use
  Company Number: None

PATIENT
  Age: 69 Year
  Sex: Male
  Weight: 117 kg

DRUGS (1)
  1. COUMADIN [Suspect]
     Dosage: 5 MG DAILY ORALLY
     Route: 048

REACTIONS (2)
  - HAEMORRHAGE [None]
  - HEADACHE [None]
